FAERS Safety Report 8939371 (Version 3)
Quarter: 2013Q1

REPORT INFORMATION
  Report Type: Report from Study
  Country: US (occurrence: US)
  Receive Date: 20121203
  Receipt Date: 20130124
  Transmission Date: 20140127
  Serious: Yes (Other)
  Sender: FDA-Public Use
  Company Number: US-JNJFOC-20121113326

PATIENT
  Sex: Female
  Weight: 59.88 kg

DRUGS (13)
  1. XARELTO [Suspect]
     Indication: CEREBROVASCULAR ACCIDENT PROPHYLAXIS
     Route: 048
     Dates: start: 20121126
  2. XARELTO [Suspect]
     Indication: CEREBROVASCULAR ACCIDENT PROPHYLAXIS
     Route: 048
     Dates: start: 20120911, end: 20121121
  3. XARELTO [Suspect]
     Indication: ATRIAL FIBRILLATION
     Route: 048
     Dates: start: 20121126
  4. XARELTO [Suspect]
     Indication: ATRIAL FIBRILLATION
     Route: 048
     Dates: start: 20120911, end: 20121121
  5. TOPROL [Concomitant]
     Indication: BLOOD PRESSURE
  6. LISINOPRIL [Concomitant]
     Indication: BLOOD PRESSURE
     Route: 048
  7. CENTRUM NOS [Concomitant]
  8. SLOW FE [Concomitant]
     Indication: ANAEMIA
  9. SLOW FE [Concomitant]
     Indication: MINERAL SUPPLEMENTATION
  10. CALCIUM [Concomitant]
     Indication: MINERAL SUPPLEMENTATION
  11. FISH OIL [Concomitant]
     Indication: MEDICAL DIET
     Route: 048
  12. VITAMIN D3 [Concomitant]
     Indication: MEDICAL DIET
  13. CALTRATE  + D [Concomitant]

REACTIONS (1)
  - Red blood cells urine positive [Recovered/Resolved]
